FAERS Safety Report 7533098-2 (Version None)
Quarter: 2011Q2

REPORT INFORMATION
  Report Type: 
  Country: None (occurrence: None)
  Receive Date: 20110608
  Receipt Date: 20110527
  Transmission Date: 20111010
  Serious: Yes (Life-Threatening, Hospitalization, Other)
  Sender: FDA-Public Use
  Company Number: DE-BAYER-2011-046142

PATIENT
  Age: 61 Year
  Sex: Male
  Weight: 103.86 kg

DRUGS (2)
  1. AVELOX [Suspect]
     Indication: BRONCHITIS BACTERIAL
  2. CODEINE SUL TAB [Concomitant]

REACTIONS (4)
  - URTICARIA [None]
  - CIRCULATORY COLLAPSE [None]
  - ANAPHYLACTIC SHOCK [None]
  - CARDIAC DISORDER [None]
